FAERS Safety Report 6145772-3 (Version None)
Quarter: 2009Q2

REPORT INFORMATION
  Report Type: 
  Country: None (occurrence: None)
  Receive Date: 20090406
  Receipt Date: 20090406
  Transmission Date: 20091009
  Serious: Yes (Life-Threatening, Hospitalization)
  Sender: FDA-Public Use
  Company Number: None

PATIENT
  Sex: Female
  Weight: 63.5036 kg

DRUGS (1)
  1. RECLAST [Suspect]
     Indication: OSTEITIS DEFORMANS
     Dosage: 5MG /100ML INFUSION SOLUTION ONCE IV
     Route: 042
     Dates: start: 20081216

REACTIONS (9)
  - ABDOMINAL DISTENSION [None]
  - DYSPNOEA [None]
  - FLUID RETENTION [None]
  - JOINT SWELLING [None]
  - OEDEMA PERIPHERAL [None]
  - RASH [None]
  - RENAL FAILURE ACUTE [None]
  - SWELLING FACE [None]
  - URTICARIA [None]
